FAERS Safety Report 24630995 (Version 1)
Quarter: 2024Q4

REPORT INFORMATION
  Report Type: Spontaneous
  Country: US (occurrence: None)
  Receive Date: 20241116
  Receipt Date: 20241116
  Transmission Date: 20250114
  Serious: Yes (Other)
  Sender: Public
  Company Number: None

PATIENT
  Age: 55 Year
  Sex: Male
  Weight: 157.5 kg

DRUGS (3)
  1. BUPRENORPHINE [Suspect]
     Active Substance: BUPRENORPHINE
     Indication: Pain
     Dates: start: 20210307, end: 20230901
  2. OXYCODONE [Concomitant]
  3. IBUPROFEN [Concomitant]

REACTIONS (3)
  - Dental caries [None]
  - Endodontic procedure [None]
  - Tooth fracture [None]

NARRATIVE: CASE EVENT DATE: 20221001
